FAERS Safety Report 19434410 (Version 1)
Quarter: 2021Q2

REPORT INFORMATION
  Report Type: Spontaneous
  Country: NL (occurrence: NL)
  Receive Date: 20210618
  Receipt Date: 20210618
  Transmission Date: 20210717
  Serious: Yes (Other)
  Sender: FDA-Public Use
  Company Number: NL-TEVA-2021-NL-1922888

PATIENT
  Age: 24 Year
  Sex: Female

DRUGS (1)
  1. DIAZEPAM TABLET 5MG / BRAND NAME NOT SPECIFIED [Suspect]
     Active Substance: DIAZEPAM
     Indication: PRODUCT USED FOR UNKNOWN INDICATION
     Dosage: THERAPY START DATE ASKU, THERAPY END DATE ASKU
     Route: 065

REACTIONS (2)
  - Mental impairment [Recovered/Resolved]
  - Somnolence [Recovered/Resolved]
